FAERS Safety Report 6381939-7 (Version None)
Quarter: 2009Q3

REPORT INFORMATION
  Report Type: 
  Country: None (occurrence: None)
  Receive Date: 20090930
  Receipt Date: 20090723
  Transmission Date: 20100115
  Serious: No
  Sender: FDA-Public Use
  Company Number: US-TYCO HEALTHCARE/MALLINCKRODT-T200901418

PATIENT
  Sex: Female
  Weight: 63.492 kg

DRUGS (2)
  1. HYDROMORPHONE HCL [Suspect]
     Indication: MIGRAINE
     Dosage: 1-2 Q 4HR, PRN
     Route: 048
     Dates: start: 20090717, end: 20090719
  2. AMBIEN [Concomitant]
     Indication: SLEEP DISORDER
     Dosage: UNK

REACTIONS (3)
  - ABDOMINAL PAIN [None]
  - DIARRHOEA [None]
  - NAUSEA [None]
